FAERS Safety Report 19168966 (Version 1)
Quarter: 2021Q2

REPORT INFORMATION
  Report Type: Spontaneous
  Country: GB (occurrence: GB)
  Receive Date: 20210422
  Receipt Date: 20210422
  Transmission Date: 20210717
  Serious: Yes (Other)
  Sender: FDA-Public Use
  Company Number: GB-PFIZER INC-2021349100

PATIENT
  Age: 31 Year
  Sex: Female

DRUGS (7)
  1. HYDROCORTISONE SODIUM SUCCINATE [Suspect]
     Active Substance: HYDROCORTISONE SODIUM SUCCINATE
     Indication: ASTHMA
     Dosage: 200 MG
     Route: 042
  2. TETRACOSACTRIN [Concomitant]
     Dosage: UNK, DEPOT
  3. PREDNISOLONE. [Concomitant]
     Active Substance: PREDNISOLONE
     Dosage: 2.5 MG, DAILY
     Route: 048
  4. TETRACOSACTRIN [Concomitant]
     Dosage: 1 G, DEPOT,
     Route: 030
  5. TETRACOSACTRIN [Concomitant]
     Dosage: UNK, INJECTION
  6. PREDNISOLONE. [Concomitant]
     Active Substance: PREDNISOLONE
     Dosage: 7.5 MG, DAILY
     Route: 048
  7. PREDNISOLONE. [Concomitant]
     Active Substance: PREDNISOLONE
     Indication: ASTHMA
     Dosage: 7.5 MG, DAILY
     Route: 048
     Dates: start: 1972

REACTIONS (4)
  - Anaphylactic reaction [Unknown]
  - Melaena [Unknown]
  - Abdominal pain lower [Unknown]
  - Purpura [Unknown]
